FAERS Safety Report 22799351 (Version 2)
Quarter: 2023Q4

REPORT INFORMATION
  Report Type: Spontaneous
  Country: US (occurrence: US)
  Receive Date: 20230808
  Receipt Date: 20231016
  Transmission Date: 20240110
  Serious: No
  Sender: FDA-Public Use
  Company Number: US-SA-SAC20230807000607

PATIENT
  Age: 19 Year
  Sex: Male

DRUGS (1)
  1. DUPIXENT [Suspect]
     Active Substance: DUPILUMAB
     Indication: Dermatitis atopic
     Dosage: 300 MG, QOW
     Route: 058
     Dates: start: 202212

REACTIONS (7)
  - Nasal congestion [Not Recovered/Not Resolved]
  - Cough [Not Recovered/Not Resolved]
  - Gastrooesophageal reflux disease [Not Recovered/Not Resolved]
  - Dyspepsia [Not Recovered/Not Resolved]
  - Vomiting [Not Recovered/Not Resolved]
  - Abdominal discomfort [Not Recovered/Not Resolved]
  - Food allergy [Not Recovered/Not Resolved]

NARRATIVE: CASE EVENT DATE: 20230101
